FAERS Safety Report 5050214-5 (Version None)
Quarter: 2006Q3

REPORT INFORMATION
  Report Type: 
  Country: None (occurrence: None)
  Receive Date: 20060713
  Receipt Date: 20050928
  Transmission Date: 20061208
  Serious: No
  Sender: FDA-Public Use
  Company Number: US-BRISTOL-MYERS SQUIBB COMPANY-13125653

PATIENT
  Sex: Female

DRUGS (10)
  1. SINEMET CR [Suspect]
     Indication: PARKINSONISM
     Route: 048
     Dates: start: 20050201
  2. COREG [Concomitant]
  3. LASIX [Concomitant]
  4. PLAVIX [Concomitant]
  5. LIPITOR [Concomitant]
  6. INSPRA [Concomitant]
  7. SYNTHROID [Concomitant]
  8. COZAAR [Concomitant]
  9. INSULIN [Concomitant]
  10. ACTONEL [Concomitant]

REACTIONS (2)
  - HALLUCINATION [None]
  - PARANOIA [None]
